FAERS Safety Report 6401324-9 (Version None)
Quarter: 2009Q4

REPORT INFORMATION
  Report Type: 
  Country: None (occurrence: None)
  Receive Date: 20091015
  Receipt Date: 20070323
  Transmission Date: 20100525
  Serious: Yes (Disabling)
  Sender: FDA-Public Use
  Company Number: US-ASTRAZENECA-2006UW07990

PATIENT
  Sex: Male
  Weight: 88 kg

DRUGS (13)
  1. SEROQUEL [Suspect]
     Indication: SLEEP DISORDER
     Dosage: 25MG TO 100MG (FLUCTUATING)
     Route: 048
     Dates: start: 19990422
  2. RISPERDAL [Concomitant]
     Dosage: 2MG TO 4MG, AT NIGHT
     Dates: start: 19990720
  3. DEPAKOTE [Concomitant]
     Dosage: 500MG TO 1000MG (FLUCTUATING)
     Dates: start: 19960113
  4. HYDROCHLOROTHIAZIDE [Concomitant]
     Dosage: DAILY
     Dates: start: 20010523
  5. REMERON [Concomitant]
     Dates: start: 19961113
  6. NEURONTIN [Concomitant]
     Dosage: 300MG TO 1200MG (FLUCTUATING)
     Route: 048
     Dates: start: 20010523
  7. GEODON [Concomitant]
     Dosage: 80MG TO 120MG, DAILY
     Route: 048
     Dates: start: 20050309
  8. ASPIRIN [Concomitant]
     Dosage: DAILY
     Dates: start: 19950505
  9. ACTOS [Concomitant]
     Route: 048
     Dates: start: 20040105
  10. METFORMIN HYDROCHLORIDE [Concomitant]
     Dosage: 500MG TO 2000MG (FLUCTUATING)
     Dates: start: 20030304
  11. VYTORIN [Concomitant]
     Dosage: 10/20, ONE TAB DAILY
     Route: 048
     Dates: start: 20050228
  12. LISINOPRIL [Concomitant]
     Route: 048
     Dates: start: 20040126
  13. GLYSET [Concomitant]
     Route: 048
     Dates: start: 20040105

REACTIONS (1)
  - ILL-DEFINED DISORDER [None]
